FAERS Safety Report 11779348 (Version 2)
Quarter: 2015Q4

REPORT INFORMATION
  Report Type: Spontaneous
  Country: HR (occurrence: HR)
  Receive Date: 20151125
  Receipt Date: 20151214
  Transmission Date: 20160304
  Serious: Yes (Death, Life-Threatening, Hospitalization, Other)
  Sender: FDA-Public Use
  Company Number: HR-TEVA-609856ISR

PATIENT
  Age: 33 Year
  Sex: Female
  Weight: 75.5 kg

DRUGS (4)
  1. PACLITAXEL PLIVA [Suspect]
     Active Substance: PACLITAXEL
     Indication: CERVIX CARCINOMA
     Dosage: 250 MILLIGRAM DAILY; VIALS
     Route: 042
     Dates: start: 20150724, end: 20151020
  2. CONTROLOC [Concomitant]
     Active Substance: PANTOPRAZOLE SODIUM
     Indication: STOMATITIS
     Dosage: 80 MILLIGRAM DAILY;
     Route: 048
     Dates: start: 20150807
  3. CARBOPLATIN PFIZER [Suspect]
     Active Substance: CARBOPLATIN
     Indication: CERVIX NEOPLASM
     Dosage: 400 MILLIGRAM DAILY;
     Route: 042
     Dates: start: 20150724, end: 20151020
  4. SINERSUL FORTE TABLETE [Concomitant]
     Indication: URINARY TRACT INFECTION
     Dosage: 1920 MILLIGRAM DAILY;
     Route: 048
     Dates: start: 20150820

REACTIONS (9)
  - Aphthous ulcer [Recovering/Resolving]
  - Oral fungal infection [Recovering/Resolving]
  - Polyneuropathy [Recovering/Resolving]
  - Febrile neutropenia [Recovering/Resolving]
  - Thrombocytopenia [Recovering/Resolving]
  - Pancytopenia [Recovering/Resolving]
  - Body temperature increased [Recovering/Resolving]
  - Oral infection [Recovering/Resolving]
  - Urinary tract infection [Recovering/Resolving]

NARRATIVE: CASE EVENT DATE: 20150820
